FAERS Safety Report 25432948 (Version 1)
Quarter: 2025Q2

REPORT INFORMATION
  Report Type: Spontaneous
  Country: AU (occurrence: AU)
  Receive Date: 20250613
  Receipt Date: 20250613
  Transmission Date: 20250717
  Serious: Yes (Other)
  Sender: TEVA
  Company Number: AU-TEVA-VS-3339265

PATIENT
  Age: 52 Year
  Sex: Male

DRUGS (2)
  1. AJOVY [Suspect]
     Active Substance: FREMANEZUMAB-VFRM
     Indication: Vestibular migraine
     Route: 065
  2. AJOVY [Suspect]
     Active Substance: FREMANEZUMAB-VFRM

REACTIONS (21)
  - Syncope [Recovered/Resolved]
  - Nausea [Unknown]
  - Contusion [Unknown]
  - Vertigo [Unknown]
  - Dizziness [Unknown]
  - Vision blurred [Unknown]
  - Drug dose omission by device [Unknown]
  - Device loosening [Unknown]
  - Fall [Unknown]
  - Cerebrovascular accident [Unknown]
  - Device malfunction [Unknown]
  - Device issue [Unknown]
  - Product quality issue [Unknown]
  - Amnesia [Unknown]
  - Device leakage [Unknown]
  - Device defective [Unknown]
  - Inappropriate schedule of product administration [Unknown]
  - Device breakage [Unknown]
  - Migraine [Unknown]
  - Type 2 diabetes mellitus [Unknown]
  - Haemorrhage [Unknown]

NARRATIVE: CASE EVENT DATE: 20240101
